FAERS Safety Report 12232251 (Version 1)
Quarter: 2016Q2

REPORT INFORMATION
  Report Type: Spontaneous
  Country: VE (occurrence: VE)
  Receive Date: 20160401
  Receipt Date: 20160401
  Transmission Date: 20160815
  Serious: Yes (Other)
  Sender: FDA-Public Use
  Company Number: PHHY2016VE001049

PATIENT
  Sex: Female

DRUGS (11)
  1. MIOVIT                             /00176001/ [Concomitant]
     Dosage: 1 DF, QD
     Route: 065
  2. VITAMIN C [Concomitant]
     Active Substance: ASCORBIC ACID
     Dosage: UNK UNK, Q2MO
     Route: 065
  3. MIOVIT                             /00176001/ [Concomitant]
     Indication: VITAMIN SUPPLEMENTATION
     Dosage: UNK UNK, Q2MO
     Route: 065
  4. EZOLIUM [Concomitant]
     Indication: PROPHYLAXIS
     Dosage: 20 MG, QOD
     Route: 065
  5. ASAPROL [Concomitant]
     Active Substance: ASPIRIN
     Indication: VITAMIN SUPPLEMENTATION
     Dosage: UNK UNK, QD
     Route: 065
  6. STALEVO [Suspect]
     Active Substance: CARBIDOPA\ENTACAPONE\LEVODOPA
     Indication: PARKINSON^S DISEASE
     Dosage: 50 MG (STALEVO 50 MG), QD
     Route: 048
     Dates: start: 2011
  7. ASPIRIN. [Concomitant]
     Active Substance: ASPIRIN
     Indication: CARDIOVASCULAR DISORDER
     Dosage: 80 MG, QD
     Route: 065
  8. STALEVO [Suspect]
     Active Substance: CARBIDOPA\ENTACAPONE\LEVODOPA
     Dosage: 0.5 DF (STALEVO 75 MG SPLIT IN HALF), QD
     Route: 048
  9. VITAMIN C [Concomitant]
     Active Substance: ASCORBIC ACID
     Indication: VITAMIN SUPPLEMENTATION
     Dosage: UNK UNK, QD
     Route: 065
  10. VITAMIN C [Concomitant]
     Active Substance: ASCORBIC ACID
     Dosage: 1 DF, QD
     Route: 065
  11. FOLIC ACID. [Concomitant]
     Active Substance: FOLIC ACID
     Indication: PRODUCT USED FOR UNKNOWN INDICATION
     Dosage: UNK, EVERY 15 DAYS
     Route: 065

REACTIONS (14)
  - Decreased activity [Unknown]
  - Hip fracture [Unknown]
  - Fall [Unknown]
  - Disease progression [Not Recovered/Not Resolved]
  - Malaise [Unknown]
  - Gait disturbance [Unknown]
  - Incorrect dose administered [Unknown]
  - Parkinson^s disease [Not Recovered/Not Resolved]
  - General physical health deterioration [Unknown]
  - Musculoskeletal stiffness [Not Recovered/Not Resolved]
  - Asthenia [Not Recovered/Not Resolved]
  - Speech disorder [Not Recovered/Not Resolved]
  - Eating disorder [Not Recovered/Not Resolved]
  - Wrong technique in product usage process [Unknown]
